FAERS Safety Report 17268227 (Version 1)
Quarter: 2020Q1

REPORT INFORMATION
  Report Type: Spontaneous
  Country: US (occurrence: US)
  Receive Date: 20200114
  Receipt Date: 20200114
  Transmission Date: 20200409
  Serious: Yes (Death, Hospitalization)
  Sender: FDA-Public Use
  Company Number: US-BAYER-2020-003259

PATIENT
  Age: 43 Year
  Sex: Female

DRUGS (7)
  1. PARACETAMOL [Suspect]
     Active Substance: ACETAMINOPHEN
     Route: 048
  2. FENTANYL. [Suspect]
     Active Substance: FENTANYL
  3. HYDROCODONE [Suspect]
     Active Substance: HYDROCODONE
  4. NAPROXEN SODIUM ({= 220 MG) [Suspect]
     Active Substance: NAPROXEN SODIUM
     Route: 048
  5. OXYCODONE [Suspect]
     Active Substance: OXYCODONE
  6. BUPROPION. [Suspect]
     Active Substance: BUPROPION
  7. ALCOHOL. [Suspect]
     Active Substance: ALCOHOL

REACTIONS (2)
  - Toxicity to various agents [Fatal]
  - Completed suicide [Fatal]
